FAERS Safety Report 6845461-3 (Version None)
Quarter: 2010Q3

REPORT INFORMATION
  Report Type: 
  Country: None (occurrence: None)
  Receive Date: 20100715
  Receipt Date: 20080915
  Transmission Date: 20110219
  Serious: Yes (Hospitalization, Other)
  Sender: FDA-Public Use
  Company Number: US-PFIZER INC-2006097236

PATIENT
  Sex: Female
  Weight: 59 kg

DRUGS (19)
  1. CHANTIX [Suspect]
     Indication: SMOKING CESSATION THERAPY
     Dates: start: 20060731, end: 20070511
  2. LIPITOR [Suspect]
     Indication: BLOOD CHOLESTEROL INCREASED
     Dosage: INTERVAL: EVERY DAY
     Dates: start: 20010101, end: 20080701
  3. BEXTRA [Suspect]
     Indication: PAIN
     Dates: start: 20030101, end: 20030101
  4. CELEBREX [Suspect]
  5. AMLODIPINE [Suspect]
     Indication: HYPERTENSION
     Dates: start: 20031101
  6. ZYBAN [Suspect]
     Indication: SMOKING CESSATION THERAPY
     Dates: start: 20031107
  7. OTHER NUTRIENTS [Suspect]
     Dosage: 4-5 COKES A DAY
  8. NORVASC [Concomitant]
  9. LISINOPRIL [Concomitant]
  10. PLAVIX [Concomitant]
  11. FOSAMAX [Concomitant]
  12. NEXIUM [Concomitant]
  13. PREMARIN [Concomitant]
  14. TOPROL-XL [Concomitant]
  15. ZETIA [Concomitant]
  16. ACETYLSALICYLIC ACID [Concomitant]
  17. ADVAIR DISKUS 100/50 [Concomitant]
  18. PROPRANOLOL [Concomitant]
  19. VIOXX [Concomitant]

REACTIONS (37)
  - ABDOMINAL DISCOMFORT [None]
  - ACUTE CORONARY SYNDROME [None]
  - ANTI-SS-A ANTIBODY POSITIVE [None]
  - ANTINUCLEAR ANTIBODY POSITIVE [None]
  - ASTHENIA [None]
  - BLOOD CHOLESTEROL INCREASED [None]
  - BLOOD PRESSURE INCREASED [None]
  - BLOOD TRIGLYCERIDES INCREASED [None]
  - BURNING SENSATION [None]
  - CHEST DISCOMFORT [None]
  - CONFUSIONAL STATE [None]
  - DETOXIFICATION [None]
  - DISORIENTATION [None]
  - DISTURBANCE IN ATTENTION [None]
  - DIZZINESS [None]
  - DYSGEUSIA [None]
  - DYSPNOEA [None]
  - HOT FLUSH [None]
  - LITHOTRIPSY [None]
  - LIVER DISORDER [None]
  - MEMORY IMPAIRMENT [None]
  - MUSCLE SPASMS [None]
  - MUSCLE STRAIN [None]
  - MYALGIA [None]
  - MYOCARDIAL INFARCTION [None]
  - NAUSEA [None]
  - NEPHROLITHIASIS [None]
  - OEDEMA [None]
  - PAIN [None]
  - PAIN IN EXTREMITY [None]
  - PULMONARY OEDEMA [None]
  - RENAL IMPAIRMENT [None]
  - SWELLING FACE [None]
  - TOBACCO USER [None]
  - TREMOR [None]
  - URETERIC OBSTRUCTION [None]
  - WHITE BLOOD CELL COUNT INCREASED [None]
